FAERS Safety Report 24673377 (Version 1)
Quarter: 2024Q4

REPORT INFORMATION
  Report Type: Report from Study
  Country: US (occurrence: US)
  Receive Date: 20241128
  Receipt Date: 20241128
  Transmission Date: 20250115
  Serious: Yes (Other)
  Sender: GLAXOSMITHKLINE
  Company Number: US-GLAXOSMITHKLINE INC-US2024120352

PATIENT

DRUGS (15)
  1. MEPOLIZUMAB [Suspect]
     Active Substance: MEPOLIZUMAB
     Indication: Product used for unknown indication
     Dosage: 300 MG, Q4W
  2. BREO ELLIPTA [Suspect]
     Active Substance: FLUTICASONE FUROATE\VILANTEROL TRIFENATATE
     Indication: Asthma
     Dosage: 1 PUFF(S), QD
  3. AMOXICILLIN\CLAVULANIC ACID [Concomitant]
     Active Substance: AMOXICILLIN\CLAVULANIC ACID
     Indication: Chronic sinusitis
     Dosage: UNK
  4. DELTASONE [Concomitant]
     Active Substance: PREDNISONE
     Indication: Chronic sinusitis
     Dosage: 20 MG, QD
  5. DELTASONE [Concomitant]
     Active Substance: PREDNISONE
     Dosage: 5 MG, QD
  6. DELTASONE [Concomitant]
     Active Substance: PREDNISONE
     Dosage: 1 MG, QD
     Route: 048
  7. DELTASONE [Concomitant]
     Active Substance: PREDNISONE
     Dosage: 3 MG, QD
  8. RITUXAN [Concomitant]
     Active Substance: RITUXIMAB
     Indication: Vasculitis
     Dosage: UNK
  9. FLONASE [Concomitant]
     Active Substance: FLUTICASONE PROPIONATE
     Indication: Product used for unknown indication
     Dosage: 1 PUFF(S), QD,50 MCG, IN EACH NOSTRIL
  10. NIZORAL [Concomitant]
     Active Substance: KETOCONAZOLE
     Indication: Product used for unknown indication
     Dosage: UNK, BID, 2% TO NAIL
  11. RITUXAN HYCELA [Concomitant]
     Active Substance: HYALURONIDASE (HUMAN RECOMBINANT)\RITUXIMAB
     Indication: Product used for unknown indication
     Dosage: UNK,1600 MG/13.4 ML
  12. KENALOG [Concomitant]
     Active Substance: TRIAMCINOLONE ACETONIDE
     Indication: Product used for unknown indication
     Dosage: UNK,0.025%
  13. COVID-19 VACCINE [Concomitant]
     Indication: Prophylaxis
     Dosage: UNK
  14. DUONEB [Concomitant]
     Active Substance: ALBUTEROL SULFATE\IPRATROPIUM BROMIDE
     Indication: Product used for unknown indication
     Dosage: UNK
  15. ALBUTEROL [Concomitant]
     Active Substance: ALBUTEROL
     Indication: Product used for unknown indication
     Dosage: UNK

REACTIONS (35)
  - Eosinophilic granulomatosis with polyangiitis [Unknown]
  - Dyspnoea [Recovering/Resolving]
  - Eosinophil count decreased [Not Recovered/Not Resolved]
  - Middle insomnia [Unknown]
  - Oxygen saturation decreased [Unknown]
  - Total lung capacity increased [Unknown]
  - Chronic gastritis [Unknown]
  - Vasculitis [Recovering/Resolving]
  - Initial insomnia [Unknown]
  - Atelectasis [Recovered/Resolved]
  - Asthma exercise induced [Unknown]
  - Diarrhoea [Unknown]
  - Anxiety [Unknown]
  - Nervousness [Unknown]
  - Antineutrophil cytoplasmic antibody positive [Unknown]
  - Sinusitis [Unknown]
  - Asthma [Unknown]
  - Eosinophilia [Unknown]
  - Drug eruption [Unknown]
  - Injection site erythema [Recovered/Resolved]
  - Scratch [Unknown]
  - Rash [Unknown]
  - Ageusia [Unknown]
  - Anosmia [Unknown]
  - Fatigue [Unknown]
  - Headache [Unknown]
  - Dyspnoea exertional [Unknown]
  - Sinus congestion [Unknown]
  - Productive cough [Unknown]
  - Malaise [Unknown]
  - Pyrexia [Recovered/Resolved]
  - Influenza like illness [Unknown]
  - Pain [Unknown]
  - Chest discomfort [Recovering/Resolving]
  - Dysphonia [Unknown]

NARRATIVE: CASE EVENT DATE: 20231201
